FAERS Safety Report 5757655-9 (Version None)
Quarter: 2008Q2

REPORT INFORMATION
  Report Type: 
  Country: None (occurrence: None)
  Receive Date: 20080603
  Receipt Date: 20080522
  Transmission Date: 20081010
  Serious: Yes (Other)
  Sender: FDA-Public Use
  Company Number: IN-PFIZER INC-2008045032

PATIENT
  Age: 72 Year
  Sex: Male

DRUGS (2)
  1. SUTENT [Suspect]
     Indication: RENAL CELL CARCINOMA RECURRENT
     Route: 048
     Dates: start: 20080508, end: 20080517
  2. AMLODIPINE [Concomitant]
     Route: 048

REACTIONS (8)
  - BLOOD PRESSURE INCREASED [None]
  - CONJUNCTIVAL HAEMORRHAGE [None]
  - HEADACHE [None]
  - JAUNDICE [None]
  - OEDEMA [None]
  - ORAL CANDIDIASIS [None]
  - PAIN [None]
  - PLATELET COUNT DECREASED [None]
